FAERS Safety Report 5387250-5 (Version None)
Quarter: 2007Q3

REPORT INFORMATION
  Report Type: 
  Country: None (occurrence: None)
  Receive Date: 20070711
  Receipt Date: 20070503
  Transmission Date: 20080115
  Serious: Yes (Hospitalization)
  Sender: FDA-Public Use
  Company Number: 001#1#2007-00317

PATIENT
  Sex: Female

DRUGS (2)
  1. ALPROSTADIL [Suspect]
     Indication: PERIPHERAL ARTERIAL OCCLUSIVE DISEASE
     Dosage: 60 MCG, INTRAVENOUS (NOT OTHERWISE SPECIFIED)
     Route: 042
     Dates: start: 20070226, end: 20070313
  2. SODIUM CHLORIDE [Suspect]
     Indication: PERIPHERAL ARTERIAL OCCLUSIVE DISEASE
     Dosage: 250 ML INTRAVENOUS (NOT OTHERWISE SPECIFIED)
     Route: 042
     Dates: start: 20070226, end: 20070313

REACTIONS (2)
  - LEFT VENTRICULAR FAILURE [None]
  - PULMONARY OEDEMA [None]
